FAERS Safety Report 5279356-6 (Version None)
Quarter: 2007Q1

REPORT INFORMATION
  Report Type: 
  Country: None (occurrence: None)
  Receive Date: 20070328
  Receipt Date: 20060221
  Transmission Date: 20070707
  Serious: No
  Sender: FDA-Public Use
  Company Number: US-AMGEN-US164157

PATIENT
  Sex: Male
  Weight: 99.9 kg

DRUGS (11)
  1. NEULASTA [Suspect]
     Indication: CHEMOTHERAPY
     Route: 058
     Dates: start: 20040701, end: 20051229
  2. CAMPTOSAR [Concomitant]
     Dates: start: 20051227
  3. LEUCOVORIN CALCIUM [Concomitant]
     Dates: start: 20051227
  4. FLUOROURACIL [Concomitant]
     Dates: start: 20051227
  5. REGLAN [Concomitant]
  6. TAGAMET [Concomitant]
     Dates: start: 20051227
  7. DECADRON [Concomitant]
     Dates: start: 20051227
  8. ZOFRAN [Concomitant]
     Dates: start: 20051227
  9. VICODIN [Concomitant]
  10. XANAX [Concomitant]
  11. ATROPINE [Concomitant]
     Dates: start: 20051227

REACTIONS (6)
  - BLOOD PRESSURE DECREASED [None]
  - DIZZINESS [None]
  - DYSPNOEA [None]
  - HYPERHIDROSIS [None]
  - NAUSEA [None]
  - OXYGEN SATURATION DECREASED [None]
